FAERS Safety Report 7293532-2 (Version None)
Quarter: 2011Q1

REPORT INFORMATION
  Report Type: 
  Country: None (occurrence: None)
  Receive Date: 20110215
  Receipt Date: 20110209
  Transmission Date: 20110831
  Serious: Yes (Death, Life-Threatening)
  Sender: FDA-Public Use
  Company Number: CH-ELI_LILLY_AND_COMPANY-CH201101006503

PATIENT
  Age: 50 Year
  Sex: Male

DRUGS (10)
  1. SERTRALIN [Concomitant]
     Dosage: 50 MG, DAILY (1/D)
     Route: 048
     Dates: start: 20100728, end: 20100808
  2. ZYPREXA [Suspect]
     Indication: DEPRESSION
     Dosage: 15 MG, DAILY (1/D)
     Route: 048
     Dates: start: 20100702, end: 20100712
  3. ZYPREXA [Suspect]
     Dosage: 20 MG, DAILY (1/D)
     Route: 048
     Dates: start: 20100717, end: 20100808
  4. TEMESTA [Concomitant]
     Dosage: 2 MG, DAILY (1/D)
     Route: 048
     Dates: start: 20100716, end: 20100729
  5. ORFIRIL [Concomitant]
     Dosage: 1800 MG, DAILY (1/D)
     Route: 048
     Dates: start: 20100702, end: 20100716
  6. ORFIRIL [Concomitant]
     Dosage: 2400 MG, DAILY (1/D)
     Route: 048
     Dates: start: 20100717, end: 20100808
  7. TEMESTA [Concomitant]
     Dosage: 1 MG, DAILY (1/D)
     Route: 048
     Dates: start: 20100730, end: 20100808
  8. ZYPREXA [Suspect]
     Dosage: 30 MG, DAILY (1/D)
     Route: 048
     Dates: start: 20100713, end: 20100716
  9. SERTRALIN [Concomitant]
     Dosage: 100 MG, DAILY (1/D)
     Route: 048
     Dates: start: 20100706, end: 20100727
  10. SERTRALIN [Concomitant]
     Dosage: 50 MG, DAILY (1/D)
     Route: 048
     Dates: start: 20100702, end: 20100705

REACTIONS (3)
  - COMPLETED SUICIDE [None]
  - OVERDOSE [None]
  - DEPRESSION [None]
